FAERS Safety Report 17947469 (Version 1)
Quarter: 2020Q2

REPORT INFORMATION
  Report Type: Spontaneous
  Country: US (occurrence: US)
  Receive Date: 20200625
  Receipt Date: 20200625
  Transmission Date: 20200714
  Serious: Yes (Life-Threatening)
  Sender: FDA-Public Use
  Company Number: None

PATIENT
  Age: 57 Year
  Sex: Female

DRUGS (4)
  1. CARBIDOPA-LEVODOPA [Suspect]
     Active Substance: CARBIDOPA\LEVODOPA
     Route: 048
     Dates: start: 20200604
  2. METOPROLOL 25 [Concomitant]
  3. DULOXETINE 20 MG [Concomitant]
     Active Substance: DULOXETINE
  4. TOPIRAMATE 25 [Concomitant]

REACTIONS (2)
  - Syncope [None]
  - Fall [None]

NARRATIVE: CASE EVENT DATE: 20200621
